FAERS Safety Report 6325796-3 (Version None)
Quarter: 2009Q3

REPORT INFORMATION
  Report Type: 
  Country: None (occurrence: None)
  Receive Date: 20090824
  Receipt Date: 20090716
  Transmission Date: 20100115
  Serious: No
  Sender: FDA-Public Use
  Company Number: US-ABBOTT-09P-163-0586097-00

PATIENT
  Sex: Male
  Weight: 124.85 kg

DRUGS (19)
  1. NIASPAN [Suspect]
     Indication: HIGH DENSITY LIPOPROTEIN DECREASED
     Dates: start: 20090609, end: 20090706
  2. LOTENSIN [Concomitant]
     Indication: DRUG USE FOR UNKNOWN INDICATION
  3. NEW GOUT MEDICATION [Concomitant]
     Indication: DRUG USE FOR UNKNOWN INDICATION
  4. TRILIPIX [Concomitant]
     Indication: DRUG USE FOR UNKNOWN INDICATION
  5. TOPROL-XL [Concomitant]
     Indication: DRUG USE FOR UNKNOWN INDICATION
  6. ALDACTONE [Concomitant]
     Indication: DRUG USE FOR UNKNOWN INDICATION
  7. VITAMIN B-12 [Concomitant]
     Indication: DRUG USE FOR UNKNOWN INDICATION
  8. FISH OIL [Concomitant]
     Indication: DRUG USE FOR UNKNOWN INDICATION
  9. MULTI-VITAMIN [Concomitant]
     Indication: DRUG USE FOR UNKNOWN INDICATION
  10. SIMVASTATIN [Concomitant]
     Indication: DRUG USE FOR UNKNOWN INDICATION
     Dosage: AT BEDTIME
  11. LASIX [Concomitant]
     Indication: DRUG USE FOR UNKNOWN INDICATION
  12. LEXAPRO [Concomitant]
     Indication: DRUG USE FOR UNKNOWN INDICATION
  13. LENOXIN [Concomitant]
     Indication: DRUG USE FOR UNKNOWN INDICATION
  14. WARFARIN [Concomitant]
     Indication: DRUG USE FOR UNKNOWN INDICATION
     Dosage: 5 MILLIGRAMS 5 DAYS A WEEK
  15. WARFARIN [Concomitant]
     Dosage: 7.5 MILLIGRAMS 2 DAYS A WEEK
  16. TYLENOL (CAPLET) [Concomitant]
     Indication: DRUG USE FOR UNKNOWN INDICATION
  17. ASPIRIN [Concomitant]
     Indication: DRUG USE FOR UNKNOWN INDICATION
     Dosage: AT BEDTIME
  18. INH [Concomitant]
     Indication: DRUG USE FOR UNKNOWN INDICATION
     Dosage: NEBULIZER
  19. PREVACID [Concomitant]
     Indication: DRUG USE FOR UNKNOWN INDICATION

REACTIONS (3)
  - PAIN [None]
  - PRURITUS [None]
  - RASH [None]
